FAERS Safety Report 20547680 (Version 1)
Quarter: 2022Q1

REPORT INFORMATION
  Report Type: Spontaneous
  Country: FR (occurrence: FR)
  Receive Date: 20220303
  Receipt Date: 20220303
  Transmission Date: 20220423
  Serious: Yes (Congenital Anomaly, Other)
  Sender: FDA-Public Use
  Company Number: FR-ABBVIE-22K-056-4296406-00

PATIENT
  Sex: Female

DRUGS (7)
  1. VALPROATE SODIUM [Suspect]
     Active Substance: VALPROATE SODIUM
     Indication: Maternal exposure timing unspecified
     Route: 064
  2. LEUCOVORIN CALCIUM [Concomitant]
     Active Substance: LEUCOVORIN CALCIUM
     Indication: Maternal exposure timing unspecified
  3. PHLOROGLUCINOL [Concomitant]
     Active Substance: PHLOROGLUCINOL
     Indication: Maternal exposure timing unspecified
  4. FERROUS SULFATE [Concomitant]
     Active Substance: FERROUS SULFATE
     Indication: Maternal exposure timing unspecified
  5. MAGNE B6 [Concomitant]
     Active Substance: MAGNESIUM\PYRIDOXINE
     Indication: Maternal exposure timing unspecified
  6. CELESTENE [Concomitant]
     Indication: Maternal exposure timing unspecified
  7. ALBUTEROL SULFATE [Concomitant]
     Active Substance: ALBUTEROL SULFATE
     Indication: Maternal exposure timing unspecified

REACTIONS (37)
  - Sleep disorder [Unknown]
  - Acute respiratory failure [Unknown]
  - Asthma [Unknown]
  - Rhinitis [Unknown]
  - Anxiety [Unknown]
  - Visual impairment [Unknown]
  - Laryngitis [Unknown]
  - Bronchopneumopathy [Unknown]
  - Ear disorder [Unknown]
  - Nasal disorder [Unknown]
  - Pharyngeal disorder [Unknown]
  - Dysmorphism [Unknown]
  - High arched palate [Unknown]
  - Mitral valve prolapse [Unknown]
  - Heart disease congenital [Unknown]
  - Regressive behaviour [Unknown]
  - Learning disorder [Unknown]
  - Disturbance in attention [Unknown]
  - Dyscalculia [Unknown]
  - Disturbance in attention [Unknown]
  - Marfan^s syndrome [Unknown]
  - Limb malformation [Unknown]
  - Congenital skin dimples [Unknown]
  - Tooth malformation [Unknown]
  - Educational problem [Unknown]
  - Psychiatric symptom [Unknown]
  - Speech disorder developmental [Unknown]
  - Dysgraphia [Unknown]
  - Disorientation [Unknown]
  - Ligament laxity [Unknown]
  - Joint laxity [Unknown]
  - Heart disease congenital [Unknown]
  - Disorientation [Unknown]
  - Sinusitis [Unknown]
  - Periorbital pain [Unknown]
  - Laryngitis [Unknown]
  - Foetal exposure during pregnancy [Unknown]

NARRATIVE: CASE EVENT DATE: 20080101
